FAERS Safety Report 18209031 (Version 1)
Quarter: 2020Q3

REPORT INFORMATION
  Report Type: Spontaneous
  Country: US (occurrence: US)
  Receive Date: 20200828
  Receipt Date: 20200828
  Transmission Date: 20201103
  Serious: No
  Sender: FDA-Public Use
  Company Number: US-LNK INTERNATIONAL, INC.-2089145

PATIENT
  Sex: Male

DRUGS (2)
  1. NAPROXEN SODIUM 220MG FILM COATED BLUE CAPLETS [Suspect]
     Active Substance: NAPROXEN SODIUM
     Indication: ARTHRALGIA
  2. NAPROXEN SODIUM 220MG FILM COATED BLUE CAPLETS [Suspect]
     Active Substance: NAPROXEN SODIUM
     Indication: MYALGIA

REACTIONS (1)
  - Drug ineffective [None]
